FAERS Safety Report 8884668 (Version 1)
Quarter: 2012Q4

REPORT INFORMATION
  Report Type: 
  Country: PL (occurrence: PL)
  Receive Date: 20121104
  Receipt Date: 20121104
  Transmission Date: 20130627
  Serious: Yes (Death)
  Sender: FDA-Public Use
  Company Number: PL-AMGEN-POLSP2012069892

PATIENT

DRUGS (3)
  1. ENBREL [Suspect]
     Indication: RHEUMATOID ARTHRITIS
     Dosage: 50 mg, weekly
     Dates: start: 20120723, end: 20120816
  2. MTX                                /00113801/ [Concomitant]
     Dosage: UNK UNK, UNK
  3. METYPRED                           /00049601/ [Concomitant]
     Dosage: UNK UNK, UNK

REACTIONS (1)
  - Lung neoplasm [Fatal]
